FAERS Safety Report 8590171 (Version 2)
Quarter: 2012Q4

REPORT INFORMATION
  Report Type: 
  Country: US (occurrence: US)
  Receive Date: 20120601
  Receipt Date: 20121023
  Transmission Date: 20130627
  Serious: Yes (Other)
  Sender: FDA-Public Use
  Company Number: US-BAYER-2012-053428

PATIENT
  Age: 35 Year
  Sex: Female
  Weight: 58.96 kg

DRUGS (2)
  1. YAZ [Suspect]
     Indication: CONTRACEPTION
     Dosage: UNK
     Dates: start: 200404, end: 2010
  2. YASMIN [Suspect]
     Dosage: UNK
     Dates: start: 200404, end: 2010

REACTIONS (10)
  - Gallbladder injury [None]
  - Cholecystitis chronic [None]
  - Malaise [None]
  - Pain [None]
  - Injury [None]
  - General physical health deterioration [None]
  - Pain [None]
  - Emotional distress [None]
  - Anxiety [None]
  - Anhedonia [None]
